FAERS Safety Report 8843909 (Version 1)
Quarter: 2012Q4

REPORT INFORMATION
  Report Type: 
  Country: US (occurrence: US)
  Receive Date: 20121016
  Receipt Date: 20121016
  Transmission Date: 20130627
  Serious: Yes (Other)
  Sender: FDA-Public Use
  Company Number: US-ROCHE-1140514

PATIENT
  Sex: Male
  Weight: 39.95 kg

DRUGS (1)
  1. NUTROPIN AQ [Suspect]
     Indication: FAILURE TO THRIVE
     Dosage: 0.33 cc
     Route: 058

REACTIONS (2)
  - Upper respiratory tract infection [Unknown]
  - Drug dose omission [Unknown]
